FAERS Safety Report 7757656-5 (Version None)
Quarter: 2011Q3

REPORT INFORMATION
  Report Type: 
  Country: None (occurrence: None)
  Receive Date: 20110916
  Receipt Date: 20110913
  Transmission Date: 20111222
  Serious: Yes (Death, Other)
  Sender: FDA-Public Use
  Company Number: PHEH2011US03730

PATIENT
  Sex: Female
  Weight: 46.712 kg

DRUGS (18)
  1. PRISTIQ [Concomitant]
  2. ARICEPT [Concomitant]
  3. POLYETHYLENE GLYCOL [Concomitant]
  4. HYDREA [Concomitant]
     Indication: NEOPLASM MALIGNANT
     Dosage: 500 MG, QD
  5. PROMETHAZINE [Concomitant]
     Indication: NAUSEA
     Dosage: 25 MG Q4H PRN
  6. ENBREL [Concomitant]
  7. CALCIUM CARBONATE [Concomitant]
  8. PSYLLIUM [Concomitant]
  9. TRAZODONE HCL [Concomitant]
  10. KEFLEX [Concomitant]
     Dosage: 500 MG, QD
  11. EXJADE [Suspect]
     Indication: NEOPLASM
     Dosage: 1000 MG, DAILY
     Route: 048
     Dates: start: 20100622
  12. PREDNISONE [Concomitant]
  13. QVAR 40 [Concomitant]
  14. SANCTURA [Concomitant]
  15. XYZAL [Concomitant]
  16. DORZOLAMIDE [Concomitant]
  17. FENTANYL [Concomitant]
  18. THYROXIN [Concomitant]

REACTIONS (47)
  - PNEUMONIA [None]
  - KYPHOSCOLIOSIS [None]
  - DEPRESSION [None]
  - BLADDER DYSFUNCTION [None]
  - WEIGHT INCREASED [None]
  - DECREASED APPETITE [None]
  - DEFORMITY [None]
  - COGNITIVE DISORDER [None]
  - SYNOVIAL DISORDER [None]
  - DYSPEPSIA [None]
  - COMPRESSION FRACTURE [None]
  - CARDIOMEGALY [None]
  - CONTUSION [None]
  - HYPOACUSIS [None]
  - HEART RATE INCREASED [None]
  - FRUSTRATION [None]
  - BODY TEMPERATURE INCREASED [None]
  - DEATH [None]
  - CEREBROVASCULAR ACCIDENT [None]
  - SKIN HYPERPIGMENTATION [None]
  - PLEURAL EFFUSION [None]
  - DIAPHRAGMATIC DISORDER [None]
  - NEOPLASM PROGRESSION [None]
  - HYPERSENSITIVITY [None]
  - MUSCULOSKELETAL PAIN [None]
  - DIARRHOEA [None]
  - RHINITIS SEASONAL [None]
  - DRUG INEFFECTIVE [None]
  - MALAISE [None]
  - DYSPNOEA EXERTIONAL [None]
  - LETHARGY [None]
  - EPISTAXIS [None]
  - RHINORRHOEA [None]
  - MUSCULOSKELETAL DISCOMFORT [None]
  - BLOOD PRESSURE DIASTOLIC DECREASED [None]
  - OEDEMA PERIPHERAL [None]
  - LUNG INFILTRATION [None]
  - NEOPLASM MALIGNANT [None]
  - REFRACTORY ANAEMIA [None]
  - LEUKAEMIA [None]
  - RESTLESS LEGS SYNDROME [None]
  - ASTHENIA [None]
  - RESTRICTIVE PULMONARY DISEASE [None]
  - RHEUMATOID NODULE [None]
  - RESPIRATORY DISORDER [None]
  - GASTROOESOPHAGEAL REFLUX DISEASE [None]
  - FATIGUE [None]
